FAERS Safety Report 24799371 (Version 1)
Quarter: 2025Q1

REPORT INFORMATION
  Report Type: Spontaneous
  Country: CN (occurrence: CN)
  Receive Date: 20250102
  Receipt Date: 20250102
  Transmission Date: 20250408
  Serious: Yes (Life-Threatening, Other)
  Sender: ACCORD
  Company Number: CN-Accord-462415

PATIENT
  Age: 61 Year
  Sex: Male

DRUGS (6)
  1. CARBOPLATIN [Suspect]
     Active Substance: CARBOPLATIN
     Indication: Small cell lung cancer metastatic
     Route: 042
     Dates: start: 202303, end: 2023
  2. IRINOTECAN [Suspect]
     Active Substance: IRINOTECAN
     Indication: Small cell lung cancer metastatic
     Route: 042
     Dates: start: 202303, end: 2023
  3. SERPLULIMAB [Suspect]
     Active Substance: SERPLULIMAB
     Indication: Small cell lung cancer metastatic
     Route: 042
     Dates: start: 202303, end: 2023
  4. TRILACICLIB [Suspect]
     Active Substance: TRILACICLIB
     Indication: Bone marrow conditioning regimen
     Route: 042
     Dates: start: 202303, end: 2023
  5. OCTREOTIDE ACETATE [Concomitant]
     Active Substance: OCTREOTIDE ACETATE
     Indication: Cushing^s syndrome
  6. MIFEPRISTONE [Concomitant]
     Active Substance: MIFEPRISTONE
     Indication: Cushing^s syndrome

REACTIONS (3)
  - Myelosuppression [Unknown]
  - Cardiac failure acute [Unknown]
  - Infection [Unknown]

NARRATIVE: CASE EVENT DATE: 20230101
